FAERS Safety Report 6093072-2 (Version None)
Quarter: 2009Q1

REPORT INFORMATION
  Report Type: 
  Country: None (occurrence: None)
  Receive Date: 20090226
  Receipt Date: 20090224
  Transmission Date: 20090719
  Serious: Yes (Other)
  Sender: FDA-Public Use
  Company Number: HR-SP-2009-00637

PATIENT
  Age: 42 Year
  Sex: Female

DRUGS (2)
  1. IMMUCYST [Suspect]
     Indication: ACCIDENTAL EXPOSURE
     Route: 050
  2. IMMUCYST [Suspect]
     Route: 050

REACTIONS (11)
  - ACCIDENTAL EXPOSURE [None]
  - BLISTER [None]
  - BOVINE TUBERCULOSIS [None]
  - DERMATITIS [None]
  - ERYTHEMA [None]
  - FATIGUE [None]
  - GRANULOMA [None]
  - HYPERHIDROSIS [None]
  - PYREXIA [None]
  - SKIN SWELLING [None]
  - SKIN ULCER [None]
